FAERS Safety Report 23844225 (Version 3)
Quarter: 2024Q2

REPORT INFORMATION
  Report Type: Spontaneous
  Country: GB (occurrence: GB)
  Receive Date: 20240510
  Receipt Date: 20240603
  Transmission Date: 20240716
  Serious: Yes (Other)
  Sender: FDA-Public Use
  Company Number: GB-MYLANLABS-2024M1041816

PATIENT
  Sex: Male

DRUGS (1)
  1. CLOZARIL [Suspect]
     Active Substance: CLOZAPINE
     Indication: Schizophrenia
     Dosage: UNK
     Route: 048
     Dates: start: 20240506

REACTIONS (5)
  - Neutropenia [Recovered/Resolved]
  - Electrocardiogram QT prolonged [Unknown]
  - Therapy interrupted [Unknown]
  - Drug ineffective [Unknown]
  - Off label use [Unknown]
